FAERS Safety Report 23052526 (Version 1)
Quarter: 2023Q4

REPORT INFORMATION
  Report Type: Spontaneous
  Country: BR (occurrence: BR)
  Receive Date: 20231011
  Receipt Date: 20231011
  Transmission Date: 20240110
  Serious: Yes (Other)
  Sender: FDA-Public Use
  Company Number: BR-AUROBINDO-AUR-APL-2023-062576

PATIENT
  Age: 48 Year
  Sex: Male

DRUGS (9)
  1. CIPROFLOXACIN [Suspect]
     Active Substance: CIPROFLOXACIN
     Indication: Paracoccidioides infection
     Dosage: 400 MILLIGRAM, ONCE A DAY FOR 4 DAY
     Route: 042
  2. FLUCONAZOLE [Suspect]
     Active Substance: FLUCONAZOLE
     Indication: Paracoccidioides infection
     Dosage: 200 MILLIGRAM, ONCE A DAY FOR 3 DAYS
     Route: 042
  3. METRONIDAZOLE [Suspect]
     Active Substance: METRONIDAZOLE
     Indication: Paracoccidioides infection
     Dosage: 800 MILLIGRAM, ONCE A DAY FOR 15 DAY
     Route: 048
  4. VANCOMYCIN [Suspect]
     Active Substance: VANCOMYCIN
     Indication: Paracoccidioides infection
     Dosage: 1000 MILLIGRAM EVERY 5 DAYS FOR 15 DAYS
     Route: 042
  5. COTRIMOXAZOLE [Suspect]
     Active Substance: SULFAMETHOXAZOLE\TRIMETHOPRIM
     Indication: Paracoccidioides infection
     Dosage: 1600MG/320MG, ONCE A DAY
     Route: 065
  6. COTRIMOXAZOLE [Suspect]
     Active Substance: SULFAMETHOXAZOLE\TRIMETHOPRIM
     Dosage: 1600MG/320MG, ONCE A DAY FOR 61 DAYS
     Route: 065
  7. CEPHALOTHIN [Concomitant]
     Active Substance: CEPHALOTHIN
     Indication: Paracoccidioides infection
     Dosage: UNK
     Route: 033
  8. TOBRAMYCIN [Concomitant]
     Active Substance: TOBRAMYCIN
     Indication: Paracoccidioides infection
     Dosage: UNK
     Route: 033
  9. CEFTAZIDIME [Concomitant]
     Active Substance: CEFTAZIDIME
     Indication: Paracoccidioides infection
     Dosage: UNK
     Route: 033

REACTIONS (1)
  - Drug ineffective [Unknown]
